FAERS Safety Report 12277479 (Version 1)
Quarter: 2016Q2

REPORT INFORMATION
  Report Type: Report from Study
  Country: US (occurrence: US)
  Receive Date: 20160418
  Receipt Date: 20160418
  Transmission Date: 20160815
  Serious: Yes (Death, Hospitalization)
  Sender: FDA-Public Use
  Company Number: US-ACTELION-A-US2016-130981

PATIENT
  Age: 78 Year
  Sex: Male

DRUGS (2)
  1. VELETRI [Suspect]
     Active Substance: EPOPROSTENOL
     Dosage: 71 NG/KG, PER MIN
     Route: 042
     Dates: start: 20160210
  2. VELETRI [Suspect]
     Active Substance: EPOPROSTENOL
     Indication: PULMONARY ARTERIAL HYPERTENSION
     Dosage: 14 NG/KG/MIN
     Route: 042
     Dates: end: 20160403

REACTIONS (12)
  - Death [Fatal]
  - Headache [Unknown]
  - Fatigue [Unknown]
  - Pain in jaw [Unknown]
  - Feeling abnormal [Unknown]
  - Asthenia [Unknown]
  - Dyspnoea [Unknown]
  - Pulmonary oedema [Unknown]
  - Nasopharyngitis [Unknown]
  - Back pain [Unknown]
  - Chills [Unknown]
  - Flushing [Unknown]

NARRATIVE: CASE EVENT DATE: 20160403
